FAERS Safety Report 18162521 (Version 1)
Quarter: 2020Q3

REPORT INFORMATION
  Report Type: Spontaneous
  Country: US (occurrence: US)
  Receive Date: 20200818
  Receipt Date: 20200818
  Transmission Date: 20201103
  Serious: Yes (Disabling)
  Sender: FDA-Public Use
  Company Number: None

PATIENT
  Age: 66 Year
  Sex: Female
  Weight: 54 kg

DRUGS (2)
  1. COSENTYX [Suspect]
     Active Substance: SECUKINUMAB
     Indication: ANKYLOSING SPONDYLITIS
     Dosage: ?          QUANTITY:1 INJECTION(S);OTHER FREQUENCY:ONCE EVERY 4 WEEKS;?
     Route: 058
  2. VIT. D, FOLIC ACID, VIT. B ? COMPLEX [Concomitant]
     Active Substance: FOLIC ACID\VITAMINS

REACTIONS (8)
  - Rash erythematous [None]
  - Psoriasis [None]
  - Skin weeping [None]
  - Skin haemorrhage [None]
  - Eye irritation [None]
  - Visual impairment [None]
  - Rash pruritic [None]
  - Rash [None]

NARRATIVE: CASE EVENT DATE: 20200727
